FAERS Safety Report 9205182 (Version 1)
Quarter: 2013Q2

REPORT INFORMATION
  Report Type: Spontaneous
  Country: KR (occurrence: KR)
  Receive Date: 20130402
  Receipt Date: 20130402
  Transmission Date: 20140414
  Serious: Yes (Hospitalization)
  Sender: FDA-Public Use
  Company Number: PHHY2013KR031396

PATIENT
  Age: 57 Year
  Sex: Female

DRUGS (3)
  1. TRAMADOL [Suspect]
     Indication: MUSCULOSKELETAL PAIN
     Dosage: 300 MG/DAY
  2. PARACETAMOL [Concomitant]
     Indication: MUSCULOSKELETAL PAIN
     Dosage: 1950 MG
  3. PREGABALIN [Concomitant]
     Indication: PAIN

REACTIONS (4)
  - Hyperaesthesia [Unknown]
  - Pain [Recovering/Resolving]
  - Irritability [Unknown]
  - Hyperhidrosis [Recovered/Resolved]
